FAERS Safety Report 7807818-3 (Version None)
Quarter: 2011Q4

REPORT INFORMATION
  Report Type: 
  Country: None (occurrence: None)
  Receive Date: 20111011
  Receipt Date: 20111006
  Transmission Date: 20120403
  Serious: Yes (Life-Threatening, Hospitalization)
  Sender: FDA-Public Use
  Company Number: DE-SANOFI-AVENTIS-2011SA065371

PATIENT
  Age: 65 Year
  Sex: Female
  Weight: 63 kg

DRUGS (6)
  1. MULTAQ [Suspect]
     Indication: ATRIAL FIBRILLATION
     Route: 048
     Dates: start: 20100101, end: 20101201
  2. HYDROCHLOROTHIAZIDE [Suspect]
     Indication: ESSENTIAL HYPERTENSION
     Route: 048
     Dates: start: 20070401
  3. METOPROLOL SUCCINATE [Concomitant]
     Route: 065
     Dates: start: 20070301
  4. RAMIPRIL [Concomitant]
     Route: 065
     Dates: start: 20070301
  5. COUMADIN [Concomitant]
     Route: 065
     Dates: start: 20070301
  6. PANTOPRAZOLE [Concomitant]
     Route: 065
     Dates: start: 20080901

REACTIONS (1)
  - CARDIOMYOPATHY [None]
